FAERS Safety Report 17998869 (Version 1)
Quarter: 2020Q3

REPORT INFORMATION
  Report Type: Spontaneous
  Country: US (occurrence: US)
  Receive Date: 20200708
  Receipt Date: 20200708
  Transmission Date: 20201103
  Serious: Yes (Hospitalization)
  Sender: FDA-Public Use
  Company Number: None

PATIENT
  Age: 73 Year
  Sex: Female

DRUGS (10)
  1. METOPROLOL. [Concomitant]
     Active Substance: METOPROLOL
  2. GABAPENTIN. [Concomitant]
     Active Substance: GABAPENTIN
  3. ROSUVASTATIN. [Concomitant]
     Active Substance: ROSUVASTATIN
  4. INLYTA [Suspect]
     Active Substance: AXITINIB
     Indication: RENAL CANCER
     Route: 048
     Dates: start: 20191224
  5. CANDESARTAN. [Concomitant]
     Active Substance: CANDESARTAN
  6. FAMOTIDINE. [Concomitant]
     Active Substance: FAMOTIDINE
  7. ALBUTEROL. [Concomitant]
     Active Substance: ALBUTEROL
  8. LEVOTHYROXINE. [Concomitant]
     Active Substance: LEVOTHYROXINE
  9. POTASSIUM CHLORIDE. [Concomitant]
     Active Substance: POTASSIUM CHLORIDE
  10. KEYTRUDA [Concomitant]
     Active Substance: PEMBROLIZUMAB

REACTIONS (4)
  - Hypertension [None]
  - Decreased appetite [None]
  - Ageusia [None]
  - Blood potassium decreased [None]

NARRATIVE: CASE EVENT DATE: 20200708
